FAERS Safety Report 5287603-X (Version None)
Quarter: 2007Q1

REPORT INFORMATION
  Report Type: 
  Country: None (occurrence: None)
  Receive Date: 20070124
  Receipt Date: 20060511
  Transmission Date: 20070707
  Serious: Yes (Life-Threatening, Hospitalization, Other)
  Sender: FDA-Public Use
  Company Number: WAES 0605USA02049

PATIENT
  Age: 56 Year
  Sex: Male
  Weight: 97.0698 kg

DRUGS (7)
  1. INVANZ [Suspect]
     Indication: ANTIBIOTIC PROPHYLAXIS
     Dosage: 1 GM/1X/IV
     Route: 042
     Dates: start: 20060504, end: 20060504
  2. DEMEROL [Suspect]
     Dosage: 25 MG
  3. OXYCONTIN [Concomitant]
  4. BUPIVACAINE HYDROCHLORIDE (+) EPINEPHRINE (+) LIDOCAINE HYDRO [Concomitant]
  5. LIDOCAINE [Concomitant]
  6. MIDAZOLAM HCL [Concomitant]
  7. PROPOFOL [Concomitant]

REACTIONS (2)
  - CHROMATURIA [None]
  - GRAND MAL CONVULSION [None]
